FAERS Safety Report 13352789 (Version 1)
Quarter: 2017Q1

REPORT INFORMATION
  Report Type: Spontaneous
  Country: US (occurrence: US)
  Receive Date: 20170320
  Receipt Date: 20170320
  Transmission Date: 20170429
  Serious: No
  Sender: FDA-Public Use
  Company Number: US-TEIKOKU PHARMA USA-TPU2017-00107

PATIENT
  Age: 76 Year
  Sex: Female
  Weight: 77.18 kg

DRUGS (1)
  1. LIDOCAINE PATCH [Suspect]
     Active Substance: LIDOCAINE
     Indication: MYALGIA
     Dosage: CUTS ONE PATCH IN HALF, PLACED EACH PATCH ON EACH SIDE OF ABDOMEN
     Route: 061
     Dates: start: 20170104, end: 20170110

REACTIONS (1)
  - Drug ineffective for unapproved indication [Unknown]

NARRATIVE: CASE EVENT DATE: 20170104
